FAERS Safety Report 5767443-5 (Version None)
Quarter: 2008Q2

REPORT INFORMATION
  Report Type: 
  Country: None (occurrence: None)
  Receive Date: 20080612
  Receipt Date: 20080609
  Transmission Date: 20081010
  Serious: Yes (Other)
  Sender: FDA-Public Use
  Company Number: US-BRISTOL-MYERS SQUIBB COMPANY-14220891

PATIENT
  Age: 80 Year
  Sex: Female
  Weight: 52 kg

DRUGS (3)
  1. SPRYCEL [Suspect]
     Indication: CHRONIC MYELOID LEUKAEMIA
     Dosage: THERAPY STOPPED IN THE WEEKEND (07JUN08-08JUN08).
     Dates: start: 20080523, end: 20080607
  2. HYDREA [Concomitant]
  3. TEMAZEPAM [Concomitant]

REACTIONS (3)
  - DIZZINESS [None]
  - MENTAL STATUS CHANGES [None]
  - RASH [None]
